FAERS Safety Report 5037783-6 (Version None)
Quarter: 2006Q2

REPORT INFORMATION
  Report Type: 
  Country: None (occurrence: None)
  Receive Date: 20060601
  Receipt Date: 20060202
  Transmission Date: 20061013
  Serious: No
  Sender: FDA-Public Use
  Company Number: 2006PV008068

PATIENT
  Age: 68 Year
  Sex: Male
  Weight: 68.4932 kg

DRUGS (3)
  1. BYETTA [Suspect]
     Indication: DIABETES MELLITUS NON-INSULIN-DEPENDENT
     Dosage: 5 MCG;BID;SC
     Route: 058
     Dates: start: 20060201
  2. AMARYL [Concomitant]
  3. ACTOPLUS MET [Concomitant]

REACTIONS (10)
  - BLOOD GLUCOSE INCREASED [None]
  - CONSTIPATION [None]
  - DYSPEPSIA [None]
  - ERUCTATION [None]
  - FLATULENCE [None]
  - GASTROOESOPHAGEAL REFLUX DISEASE [None]
  - NAUSEA [None]
  - NERVOUSNESS [None]
  - VISUAL ACUITY REDUCED [None]
  - WEIGHT DECREASED [None]
